FAERS Safety Report 9308000 (Version 1)
Quarter: 2013Q2

REPORT INFORMATION
  Report Type: Spontaneous
  Country: JP (occurrence: JP)
  Receive Date: 20130524
  Receipt Date: 20130524
  Transmission Date: 20140414
  Serious: Yes (Other)
  Sender: FDA-Public Use
  Company Number: JP-SANOFI-AVENTIS-2013SA050585

PATIENT
  Age: 76 Year
  Sex: Male

DRUGS (2)
  1. ONETAXOTERE [Suspect]
     Indication: LUNG ADENOCARCINOMA
     Route: 042
     Dates: start: 20130509
  2. FLUITRAN [Suspect]
     Indication: PRODUCT USED FOR UNKNOWN INDICATION
     Route: 065
     Dates: start: 20130510, end: 20130513

REACTIONS (2)
  - Inappropriate antidiuretic hormone secretion [Recovered/Resolved]
  - Decreased appetite [Recovered/Resolved]
